FAERS Safety Report 23227447 (Version 1)
Quarter: 2023Q4

REPORT INFORMATION
  Report Type: Spontaneous
  Country: CN (occurrence: CN)
  Receive Date: 20231124
  Receipt Date: 20231124
  Transmission Date: 20240110
  Serious: Yes (Other)
  Sender: FDA-Public Use
  Company Number: CN-PFIZER INC-PV202300190299

PATIENT
  Age: 77 Year
  Sex: Male
  Weight: 77 kg

DRUGS (2)
  1. FLUCONAZOLE [Suspect]
     Active Substance: FLUCONAZOLE
     Indication: Pneumonia
     Dosage: 0.2 G, 1X/DAY
     Route: 041
     Dates: start: 20230730, end: 20230814
  2. MOXIFLOXACIN HYDROCHLORIDE [Suspect]
     Active Substance: MOXIFLOXACIN HYDROCHLORIDE\MOXIFLOXACIN HYDROCHLORIDE MONOHYDRATE
     Indication: Pneumonia
     Dosage: 0.4 G, 1X/DAY
     Route: 041
     Dates: start: 20230726, end: 20230808

REACTIONS (7)
  - Hallucination, visual [Recovering/Resolving]
  - Abnormal behaviour [Recovering/Resolving]
  - White blood cell count decreased [Recovering/Resolving]
  - Neutrophil count decreased [Recovering/Resolving]
  - Lymphocyte count decreased [Recovering/Resolving]
  - Disorganised speech [Recovering/Resolving]
  - Aggression [Recovering/Resolving]

NARRATIVE: CASE EVENT DATE: 20230807
